FAERS Safety Report 7389003-5 (Version None)
Quarter: 2011Q1

REPORT INFORMATION
  Report Type: 
  Country: None (occurrence: None)
  Receive Date: 20110329
  Receipt Date: 20110329
  Transmission Date: 20110831
  Serious: Yes (Death)
  Sender: FDA-Public Use
  Company Number: None

PATIENT
  Age: 14 Year
  Sex: Male
  Weight: 68.0396 kg

DRUGS (1)
  1. LEVETIRACETAM [Suspect]
     Indication: PETIT MAL EPILEPSY
     Dosage: 500 TWICE DAILY
     Dates: start: 20091229, end: 20100524

REACTIONS (6)
  - ABNORMAL BEHAVIOUR [None]
  - IRRITABILITY [None]
  - COMPLETED SUICIDE [None]
  - CONVULSION [None]
  - FEELING ABNORMAL [None]
  - PRODUCT QUALITY ISSUE [None]
